FAERS Safety Report 9883362 (Version 2)
Quarter: 2014Q1

REPORT INFORMATION
  Report Type: Spontaneous
  Country: FI (occurrence: FI)
  Receive Date: 20140210
  Receipt Date: 20140218
  Transmission Date: 20141002
  Serious: Yes (Other)
  Sender: FDA-Public Use
  Company Number: FI-AMGEN-FINSP2014007463

PATIENT
  Age: 26 Year
  Sex: Male

DRUGS (1)
  1. ARANESP [Suspect]
     Indication: PRODUCT USED FOR UNKNOWN INDICATION
     Dosage: UNK
     Route: 065
     Dates: start: 201308

REACTIONS (5)
  - Haemoglobin decreased [Recovering/Resolving]
  - Serum ferritin increased [Unknown]
  - Transferrin saturation increased [Unknown]
  - Drug ineffective [Unknown]
  - Viral infection [Unknown]
